FAERS Safety Report 4287946-2 (Version None)
Quarter: 2004Q1

REPORT INFORMATION
  Report Type: 
  Country: None (occurrence: None)
  Receive Date: 20040209
  Receipt Date: 20031105
  Transmission Date: 20041129
  Serious: No
  Sender: FDA-Public Use
  Company Number: US-GLAXOSMITHKLINE-A0433110A

PATIENT
  Age: 31 Year
  Sex: Female

DRUGS (2)
  1. PAXIL [Suspect]
     Indication: DEPRESSION
     Dosage: 25MG PER DAY
     Route: 048
     Dates: start: 20031030
  2. VICODIN [Suspect]
     Dosage: 3UNIT SINGLE DOSE
     Route: 065
     Dates: start: 20031102, end: 20031102

REACTIONS (3)
  - FEELING ABNORMAL [None]
  - MYDRIASIS [None]
  - NAUSEA [None]
